FAERS Safety Report 5134111-2 (Version None)
Quarter: 2006Q4

REPORT INFORMATION
  Report Type: 
  Country: None (occurrence: None)
  Receive Date: 20061024
  Receipt Date: 20050530
  Transmission Date: 20070319
  Serious: Yes (Hospitalization)
  Sender: FDA-Public Use
  Company Number: DE-BAYER-200510531BVD

PATIENT
  Age: 68 Year
  Sex: Female
  Weight: 65 kg

DRUGS (3)
  1. AVELOX [Suspect]
     Indication: BRONCHITIS
     Dosage: TOTAL DAILY DOSE: 400 MG
     Route: 048
  2. DOXYCYCLINE [Concomitant]
     Indication: BRONCHITIS
     Route: 048
  3. CATAPRES [Concomitant]
     Indication: HYPERTENSION
     Route: 048

REACTIONS (4)
  - KIDNEY INFECTION [None]
  - NEPHRITIS INTERSTITIAL [None]
  - RENAL FAILURE ACUTE [None]
  - RENAL TUBULAR DISORDER [None]
